FAERS Safety Report 4705247-2 (Version None)
Quarter: 2005Q2

REPORT INFORMATION
  Report Type: 
  Country: None (occurrence: None)
  Receive Date: 20050629
  Receipt Date: 20050614
  Transmission Date: 20051028
  Serious: Yes (Hospitalization)
  Sender: FDA-Public Use
  Company Number: 2005AL002272

PATIENT
  Sex: Female

DRUGS (10)
  1. GABAPENTIN [Suspect]
     Indication: NEUROPATHIC PAIN
     Dosage: 300 MG ; BID; PO
     Route: 048
  2. GLYBURIDE [Concomitant]
  3. METOPROLOL [Concomitant]
  4. HYDROCHLOROTHIAZIDE W/ LOSARTAN [Concomitant]
  5. FENTANYL [Concomitant]
  6. OMEPRAZOLE [Concomitant]
  7. DOCUSATE SODUM [Concomitant]
  8. BISACODYL [Concomitant]
  9. EPOETIN ALFA [Concomitant]
  10. SUCRALFATE [Concomitant]

REACTIONS (6)
  - ASTERIXIS [None]
  - COORDINATION ABNORMAL [None]
  - FALL [None]
  - GAIT DISTURBANCE [None]
  - MYOCLONUS [None]
  - OFF LABEL USE [None]
